FAERS Safety Report 5491258-9 (Version None)
Quarter: 2007Q4

REPORT INFORMATION
  Report Type: 
  Country: None (occurrence: None)
  Receive Date: 20071019
  Receipt Date: 20071015
  Transmission Date: 20080405
  Serious: Yes (Hospitalization, Other)
  Sender: FDA-Public Use
  Company Number: US-MERCK-0706USA00666

PATIENT
  Age: 65 Year
  Sex: Female

DRUGS (8)
  1. FOSAMAX [Suspect]
     Indication: OSTEOPOROSIS
     Route: 048
     Dates: start: 19960111, end: 20010201
  2. FOSAMAX [Suspect]
     Route: 048
     Dates: start: 20010201
  3. ESTROGENS (UNSPECIFIED) [Concomitant]
     Route: 065
     Dates: start: 19990816, end: 20060404
  4. ZOLOFT [Concomitant]
     Route: 065
  5. ADVAIR DISKUS 100/50 [Concomitant]
     Route: 065
  6. NULEV [Concomitant]
     Route: 065
  7. FLONASE [Concomitant]
     Route: 065
  8. AREDIA [Concomitant]
     Route: 065
     Dates: start: 19970101, end: 20030601

REACTIONS (28)
  - ACNE [None]
  - ARTHROPATHY [None]
  - ASTHMA [None]
  - BREAST CANCER [None]
  - CATARACT [None]
  - CELLULITIS [None]
  - CHRONIC SINUSITIS [None]
  - COLON ADENOMA [None]
  - CONSTIPATION [None]
  - DENTAL FISTULA [None]
  - DIARRHOEA [None]
  - DIVERTICULUM [None]
  - DYSPEPSIA [None]
  - EAR PAIN [None]
  - GASTROOESOPHAGEAL REFLUX DISEASE [None]
  - IRRITABLE BOWEL SYNDROME [None]
  - MENISCUS LESION [None]
  - OESOPHAGITIS [None]
  - ORAL TORUS [None]
  - OSTEOCHONDROMA [None]
  - OSTEOMYELITIS [None]
  - OSTEONECROSIS [None]
  - PLEURISY [None]
  - POSTOPERATIVE ABSCESS [None]
  - POSTOPERATIVE WOUND INFECTION [None]
  - PULMONARY CALCIFICATION [None]
  - RENAL DISORDER [None]
  - TOOTH INFECTION [None]
